FAERS Safety Report 5028075-X (Version None)
Quarter: 2006Q2

REPORT INFORMATION
  Report Type: 
  Country: None (occurrence: None)
  Receive Date: 20060613
  Receipt Date: 20060601
  Transmission Date: 20061013
  Serious: Yes (Death, Other)
  Sender: FDA-Public Use
  Company Number: 2006044051

PATIENT
  Age: 80 Year
  Sex: Female

DRUGS (10)
  1. MACUGEN [Suspect]
     Indication: MACULAR DEGENERATION
     Dosage: 0.3 MG, INTRAVITREOUS
     Dates: start: 20060206, end: 20060321
  2. CARDIZEM CD [Concomitant]
  3. PLAVIX [Concomitant]
  4. AVAPRO [Concomitant]
  5. PAVACHOL (PRAVASTATIN SODIUM) [Concomitant]
  6. LOVASTATIN [Concomitant]
  7. CALCIUM (CALCIUM) [Concomitant]
  8. FOLIC ACID [Concomitant]
  9. METHOTREXATE [Concomitant]
  10. ZOLOFT [Concomitant]

REACTIONS (5)
  - BALANCE DISORDER [None]
  - FALL [None]
  - HAEMORRHAGE INTRACRANIAL [None]
  - HEAD INJURY [None]
  - SUDDEN DEATH [None]
